FAERS Safety Report 23107254 (Version 3)
Quarter: 2025Q1

REPORT INFORMATION
  Report Type: Report from Study
  Country: US (occurrence: US)
  Receive Date: 20231026
  Receipt Date: 20250130
  Transmission Date: 20250409
  Serious: Yes (Other)
  Sender: TAKEDA
  Company Number: US-TAKEDA-2023TUS103260

PATIENT
  Age: 78 Year
  Sex: Female
  Weight: 48 kg

DRUGS (13)
  1. GLASSIA [Suspect]
     Active Substance: .ALPHA.1-PROTEINASE INHIBITOR HUMAN
     Indication: Alpha-1 antitrypsin deficiency
     Dosage: 60 MILLIGRAM/KILOGRAM, 1/WEEK
     Dates: start: 20230505
  2. GLASSIA [Suspect]
     Active Substance: .ALPHA.1-PROTEINASE INHIBITOR HUMAN
     Dosage: UNK UNK, 1/WEEK
  3. PROLIA [Concomitant]
     Active Substance: DENOSUMAB
  4. ALBUTEROL [Concomitant]
     Active Substance: ALBUTEROL
     Indication: Asthma
     Dosage: UNK UNK, Q6HR
  5. AZELASTINE [Concomitant]
     Active Substance: AZELASTINE
     Indication: Rhinitis allergic
     Dosage: UNK UNK, BID
  6. BREO ELLIPTA [Concomitant]
     Active Substance: FLUTICASONE FUROATE\VILANTEROL TRIFENATATE
  7. SODIUM CHLORIDE [Concomitant]
     Active Substance: SODIUM CHLORIDE
  8. DRISDOL [Concomitant]
     Active Substance: ERGOCALCIFEROL
  9. FLONASE [Concomitant]
     Active Substance: FLUTICASONE PROPIONATE
  10. LORATADINE [Concomitant]
     Active Substance: LORATADINE
  11. SODIUM CHLORIDE [Concomitant]
     Active Substance: SODIUM CHLORIDE
  12. VITAMIN D3 [Concomitant]
     Active Substance: CHOLECALCIFEROL
     Indication: Vitamin D deficiency
     Dosage: UNK UNK, 1/WEEK
  13. DENOSUMAB [Concomitant]
     Active Substance: DENOSUMAB
     Indication: Osteoporosis
     Dosage: UNK UNK, Q6MONTHS

REACTIONS (2)
  - Pneumonia [Unknown]
  - Inappropriate schedule of product administration [Recovered/Resolved]

NARRATIVE: CASE EVENT DATE: 20250121
